FAERS Safety Report 6480572-6 (Version None)
Quarter: 2009Q4

REPORT INFORMATION
  Report Type: 
  Country: None (occurrence: None)
  Receive Date: 20091208
  Receipt Date: 20091127
  Transmission Date: 20100525
  Serious: Yes (Hospitalization)
  Sender: FDA-Public Use
  Company Number: US-RB-023246-09

PATIENT
  Age: 56 Year
  Sex: Male

DRUGS (3)
  1. SUBOXONE [Suspect]
     Route: 060
     Dates: start: 20091001, end: 20091028
  2. SUBOXONE [Suspect]
     Route: 060
     Dates: start: 20091029
  3. DILANTIN [Concomitant]
     Indication: DRUG USE FOR UNKNOWN INDICATION
     Route: 065

REACTIONS (4)
  - BLADDER MASS [None]
  - DRUG DEPENDENCE [None]
  - FATIGUE [None]
  - NEPHROLITHIASIS [None]
